FAERS Safety Report 9911439 (Version 1)
Quarter: 2014Q1

REPORT INFORMATION
  Report Type: Spontaneous
  Country: TR (occurrence: TR)
  Receive Date: 20140219
  Receipt Date: 20140219
  Transmission Date: 20141002
  Serious: Yes (Death, Hospitalization, Other)
  Sender: FDA-Public Use
  Company Number: PHHY2014TR019443

PATIENT
  Age: 6 Month
  Sex: Male
  Weight: 3.4 kg

DRUGS (14)
  1. CICLOSPORIN [Suspect]
     Indication: PROPHYLAXIS AGAINST GRAFT VERSUS HOST DISEASE
     Dosage: 3 MG/KG/DAY
     Route: 042
  2. PREDNISOLONE [Suspect]
     Indication: PROPHYLAXIS AGAINST GRAFT VERSUS HOST DISEASE
     Dosage: 2 MG/KG, PER DAY
  3. PREDNISOLONE [Suspect]
     Dosage: 1 MG/KG, PER DAY FOR 5 DAYS
  4. ETOPOSIDE [Suspect]
     Indication: HISTIOCYTOSIS HAEMATOPHAGIC
     Dosage: 5 MG/KG, PER WEEK
  5. ISONIAZID [Suspect]
  6. RIFAMPICIN [Suspect]
  7. CLOFAZIMINE [Suspect]
  8. CIPROFLOXACIN [Suspect]
  9. CLARITHROMYCIN [Suspect]
  10. BCG VACCINE [Suspect]
  11. ANTITHYMOCYTE IMMUNOGLOBULIN [Concomitant]
     Dosage: 10 MG/KG, UNK
  12. BUSULPHAN [Concomitant]
     Dosage: 8 MG/KG, UNK
  13. FLUDARABINE [Concomitant]
     Dosage: 100 MG/M2, UNK
  14. IMMUNOGLOBULINS [Concomitant]
     Route: 042

REACTIONS (9)
  - Multi-organ failure [Fatal]
  - Bovine tuberculosis [Recovering/Resolving]
  - Histiocytosis haematophagic [Unknown]
  - Pancytopenia [Unknown]
  - Bone marrow failure [Unknown]
  - Blood stem cell transplant failure [Unknown]
  - Toxicity to various agents [Unknown]
  - Drug ineffective [Unknown]
  - No therapeutic response [Unknown]
